FAERS Safety Report 9863817 (Version 2)
Quarter: 2014Q3

REPORT INFORMATION
  Report Type: Spontaneous
  Country: US (occurrence: US)
  Receive Date: 20140203
  Receipt Date: 20140826
  Transmission Date: 20150326
  Serious: Yes (Hospitalization)
  Sender: FDA-Public Use
  Company Number: US-GLAXOSMITHKLINE-A1033066A

PATIENT
  Sex: Female

DRUGS (1)
  1. AVANDIA [Suspect]
     Active Substance: ROSIGLITAZONE MALEATE
     Indication: DIABETES MELLITUS
     Dosage: 4MG PER DAY
     Route: 048
     Dates: start: 200206, end: 20070406

REACTIONS (5)
  - Deafness unilateral [Unknown]
  - Aortic stenosis [Unknown]
  - Angina pectoris [Unknown]
  - Muscular weakness [Unknown]
  - Coronary artery disease [Unknown]
